FAERS Safety Report 7352362-3 (Version None)
Quarter: 2011Q1

REPORT INFORMATION
  Report Type: 
  Country: None (occurrence: None)
  Receive Date: 20110309
  Receipt Date: 20110309
  Transmission Date: 20110831
  Serious: Yes (Hospitalization, Other)
  Sender: FDA-Public Use
  Company Number: None

PATIENT
  Age: 27 Year
  Sex: Male
  Weight: 55.3388 kg

DRUGS (2)
  1. CIPROFLOXACIN HCL [Suspect]
     Indication: URINARY TRACT INFECTION
     Dates: start: 20100730, end: 20100820
  2. CIPROFLOXACIN HCL [Suspect]
     Indication: PROSTATITIS
     Dosage: 500 MG 2X DAILY PO
     Route: 047
     Dates: start: 20100710, end: 20100724

REACTIONS (15)
  - INSOMNIA [None]
  - ASTHENIA [None]
  - PSYCHOTIC DISORDER [None]
  - CHEST PAIN [None]
  - PANIC ATTACK [None]
  - PAIN IN EXTREMITY [None]
  - TACHYCARDIA [None]
  - FATIGUE [None]
  - URINARY TRACT INFECTION [None]
  - TENDONITIS [None]
  - PALPITATIONS [None]
  - ANXIETY [None]
  - MUSCLE SPASMS [None]
  - NERVE INJURY [None]
  - HEADACHE [None]
